FAERS Safety Report 21027818 (Version 1)
Quarter: 2022Q2

REPORT INFORMATION
  Report Type: Spontaneous
  Country: US (occurrence: None)
  Receive Date: 20220630
  Receipt Date: 20220630
  Transmission Date: 20220720
  Serious: No
  Sender: FDA-Public Use
  Company Number: US-ALM-HQ-US-2022-0873

PATIENT
  Sex: Female

DRUGS (1)
  1. KLISYRI [Suspect]
     Active Substance: TIRBANIBULIN
     Indication: Actinic keratosis
     Route: 061
     Dates: start: 20220427, end: 20220501

REACTIONS (1)
  - Erythema [Unknown]
